FAERS Safety Report 7799769-8 (Version None)
Quarter: 2011Q4

REPORT INFORMATION
  Report Type: 
  Country: None (occurrence: None)
  Receive Date: 20111006
  Receipt Date: 20110922
  Transmission Date: 20120403
  Serious: Yes (Hospitalization)
  Sender: FDA-Public Use
  Company Number: DE-UCBSA-000870

PATIENT
  Age: 38 Year
  Sex: Female

DRUGS (22)
  1. VIMPAT [Suspect]
     Route: 048
     Dates: start: 20081124, end: 20081127
  2. LAMOTRIGINE [Concomitant]
     Dates: start: 20090129, end: 20090205
  3. OLANZAPINE [Concomitant]
     Dates: start: 20081215, end: 20081216
  4. VIMPAT [Suspect]
     Route: 048
     Dates: start: 20081113, end: 20081116
  5. VIMPAT [Suspect]
     Route: 048
     Dates: start: 20081117, end: 20081123
  6. LAMOTRIGINE [Concomitant]
     Indication: EPILEPSY
     Dates: start: 20010101, end: 20090128
  7. VALPROATE SODIUM [Concomitant]
     Dates: start: 20090126
  8. OLANZAPINE [Concomitant]
     Indication: PSYCHOTIC DISORDER
     Dates: end: 20081214
  9. TOPIRAMATE [Concomitant]
     Indication: EPILEPSY
     Dates: start: 20080101, end: 20081203
  10. TOPIRAMATE [Concomitant]
     Dates: start: 20090130
  11. TOPIRAMATE [Concomitant]
     Dates: start: 20081207, end: 20090115
  12. PANTOPRAZOLE [Concomitant]
     Indication: GASTRITIS PROPHYLAXIS
  13. ARIPIPRAZOL [Concomitant]
     Dates: start: 20081216
  14. VALPROATE SODIUM [Concomitant]
     Indication: EPILEPSY
     Dates: end: 20090125
  15. ARIPIPRAZOL [Concomitant]
     Indication: PSYCHOTIC DISORDER
     Dates: start: 20081129, end: 20081208
  16. ARIPIPRAZOL [Concomitant]
     Dates: start: 20081214, end: 20081215
  17. VIMPAT [Suspect]
     Route: 048
     Dates: start: 20081128
  18. TOPIRAMATE [Concomitant]
     Dates: start: 20081204, end: 20081206
  19. TOPIRAMATE [Concomitant]
     Dates: start: 20090119, end: 20090121
  20. ARIPIPRAZOL [Concomitant]
     Dates: start: 20081209, end: 20081213
  21. TOPIRAMATE [Concomitant]
     Dates: start: 20090116, end: 20090116
  22. TOPIRAMATE [Concomitant]
     Dates: start: 20090117, end: 20090118

REACTIONS (2)
  - DIZZINESS [None]
  - DRUG INEFFECTIVE [None]
